FAERS Safety Report 12329752 (Version 1)
Quarter: 2016Q2

REPORT INFORMATION
  Report Type: Spontaneous
  Country: US (occurrence: US)
  Receive Date: 20160503
  Receipt Date: 20160503
  Transmission Date: 20160815
  Serious: No
  Sender: FDA-Public Use
  Company Number: US-ELI_LILLY_AND_COMPANY-US201604008612

PATIENT
  Sex: Female

DRUGS (5)
  1. HUMULIN R [Suspect]
     Active Substance: INSULIN HUMAN
     Dosage: 1 DF, SINGLE
     Route: 065
     Dates: start: 20160420
  2. HUMALOG [Suspect]
     Active Substance: INSULIN LISPRO
     Indication: TYPE 1 DIABETES MELLITUS
     Dosage: 0.5-1 U, 3-4 TIMES A DAY
     Route: 065
     Dates: start: 201510
  3. HUMALOG [Suspect]
     Active Substance: INSULIN LISPRO
     Dosage: 0.5-1 U, 3-4 TIMES A DAY
     Route: 065
     Dates: end: 20160417
  4. HUMULIN R [Suspect]
     Active Substance: INSULIN HUMAN
     Indication: ACETONAEMIA
     Dosage: 1 DF, SINGLE
     Route: 065
     Dates: start: 201512, end: 201512
  5. LANTUS [Concomitant]
     Active Substance: INSULIN GLARGINE
     Indication: PRODUCT USED FOR UNKNOWN INDICATION
     Dosage: UNK UNK, QD
     Route: 065

REACTIONS (3)
  - Off label use [Unknown]
  - Injection site urticaria [Unknown]
  - Drug hypersensitivity [Recovering/Resolving]

NARRATIVE: CASE EVENT DATE: 201512
